FAERS Safety Report 7362740-4 (Version None)
Quarter: 2011Q1

REPORT INFORMATION
  Report Type: 
  Country: None (occurrence: None)
  Receive Date: 20110321
  Receipt Date: 20110310
  Transmission Date: 20110831
  Serious: No
  Sender: FDA-Public Use
  Company Number: US-BIOGENIDEC-2010BI008847

PATIENT
  Age: 36 Year
  Sex: Female

DRUGS (2)
  1. TYSABRI [Suspect]
     Indication: MULTIPLE SCLEROSIS
     Route: 042
     Dates: start: 20091119
  2. AMBIEN [Concomitant]
     Indication: INSOMNIA

REACTIONS (4)
  - HYPERSENSITIVITY [None]
  - FATIGUE [None]
  - MENTAL IMPAIRMENT [None]
  - VISUAL ACUITY REDUCED [None]
